FAERS Safety Report 7700385-4 (Version None)
Quarter: 2011Q3

REPORT INFORMATION
  Report Type: 
  Country: None (occurrence: None)
  Receive Date: 20110822
  Receipt Date: 20110818
  Transmission Date: 20111222
  Serious: Yes (Other)
  Sender: FDA-Public Use
  Company Number: US-BRISTOL-MYERS SQUIBB COMPANY-15982549

PATIENT
  Age: 68 Year
  Sex: Female

DRUGS (4)
  1. COUMADIN [Suspect]
  2. FENTANYL-100 [Concomitant]
  3. DIOVAN [Concomitant]
  4. FLEXERIL [Concomitant]

REACTIONS (2)
  - EYE HAEMORRHAGE [None]
  - GLAUCOMA [None]
